FAERS Safety Report 22197216 (Version 5)
Quarter: 2023Q4

REPORT INFORMATION
  Report Type: Spontaneous
  Country: US (occurrence: US)
  Receive Date: 20230411
  Receipt Date: 20231129
  Transmission Date: 20240109
  Serious: No
  Sender: FDA-Public Use
  Company Number: US-PFIZER INC-PV202300065543

PATIENT
  Age: 89 Year
  Sex: Female
  Weight: 77.098 kg

DRUGS (2)
  1. IBRANCE [Suspect]
     Active Substance: PALBOCICLIB
     Indication: Breast cancer female
     Dosage: 21 DAYS, 7 DAYS OFF
     Dates: start: 202210
  2. IBRANCE [Suspect]
     Active Substance: PALBOCICLIB
     Dosage: 1 TABLET ONCE DAILY (QD) W/ FOOD ON DAYS 1-21 FOLLOWED BY 7-DAY REST; 28-DAY CYCLE
     Route: 048

REACTIONS (1)
  - Dysgraphia [Unknown]
